FAERS Safety Report 16682954 (Version 1)
Quarter: 2019Q3

REPORT INFORMATION
  Report Type: Spontaneous
  Country: PR (occurrence: PR)
  Receive Date: 20190807
  Receipt Date: 20190807
  Transmission Date: 20191004
  Serious: No
  Sender: FDA-Public Use
  Company Number: None

PATIENT
  Age: 56 Year
  Sex: Male
  Weight: 95.4 kg

DRUGS (1)
  1. LINEZOLID. [Suspect]
     Active Substance: LINEZOLID
     Indication: OSTEOMYELITIS ACUTE
     Route: 041
     Dates: start: 20190613, end: 20190618

REACTIONS (4)
  - Chills [None]
  - Therapy cessation [None]
  - Discomfort [None]
  - Nausea [None]

NARRATIVE: CASE EVENT DATE: 20190618
